FAERS Safety Report 7204315-3 (Version None)
Quarter: 2010Q4

REPORT INFORMATION
  Report Type: 
  Country: None (occurrence: None)
  Receive Date: 20101230
  Receipt Date: 20101221
  Transmission Date: 20110411
  Serious: Yes (Hospitalization, Other)
  Sender: FDA-Public Use
  Company Number: US-ASTRAZENECA-2010SE52440

PATIENT
  Age: 883 Month
  Sex: Female

DRUGS (6)
  1. ATACAND [Suspect]
     Indication: HYPERTENSION
     Route: 048
  2. ATACAND [Suspect]
     Route: 048
     Dates: start: 20101001
  3. ATENOLOL [Concomitant]
     Route: 048
  4. OMEPRAZOLE [Concomitant]
     Route: 048
  5. CHOLECALCIFEROL [Concomitant]
     Dosage: 1000 UNITS ONE TABLET BY MOUTH EVERY OTHER DAY.
     Route: 048
  6. FISH OIL OMEGA 3 FATTY ACIDS [Concomitant]
     Route: 048

REACTIONS (6)
  - CANDIDIASIS [None]
  - CLOSTRIDIUM DIFFICILE COLITIS [None]
  - DYSGEUSIA [None]
  - HYPOAESTHESIA ORAL [None]
  - INAPPROPRIATE SCHEDULE OF DRUG ADMINISTRATION [None]
  - SALIVARY GLAND CALCULUS [None]
